FAERS Safety Report 6658185-2 (Version None)
Quarter: 2010Q1

REPORT INFORMATION
  Report Type: 
  Country: None (occurrence: None)
  Receive Date: 20100330
  Receipt Date: 20100325
  Transmission Date: 20100710
  Serious: Yes (Hospitalization)
  Sender: FDA-Public Use
  Company Number: B0643558A

PATIENT
  Age: 83 Year
  Sex: Male

DRUGS (2)
  1. AVOLVE [Suspect]
     Indication: DRUG USE FOR UNKNOWN INDICATION
     Route: 048
     Dates: start: 20100110, end: 20100209
  2. HARNAL [Concomitant]
     Route: 048

REACTIONS (2)
  - EPISTAXIS [None]
  - PLATELET COUNT DECREASED [None]
